FAERS Safety Report 17979222 (Version 1)
Quarter: 2020Q3

REPORT INFORMATION
  Report Type: Spontaneous
  Country: PL (occurrence: PL)
  Receive Date: 20200703
  Receipt Date: 20200703
  Transmission Date: 20201103
  Serious: Yes (Other)
  Sender: FDA-Public Use
  Company Number: PL-GILEAD-2020-0474378

PATIENT
  Age: 38 Year
  Sex: Male

DRUGS (5)
  1. GENVOYA [Suspect]
     Active Substance: COBICISTAT\ELVITEGRAVIR\EMTRICITABINE\TENOFOVIR ALAFENAMIDE FUMARATE
     Indication: CEREBRAL TOXOPLASMOSIS
  2. DEPAKINE CHRONO [Concomitant]
     Active Substance: VALPROATE SODIUM
  3. GENVOYA [Suspect]
     Active Substance: COBICISTAT\ELVITEGRAVIR\EMTRICITABINE\TENOFOVIR ALAFENAMIDE FUMARATE
     Indication: ACQUIRED IMMUNODEFICIENCY SYNDROME
     Dosage: UNK
     Route: 048
     Dates: start: 201901, end: 202003
  4. ALPRAGEN [Concomitant]
     Active Substance: ALPRAZOLAM
  5. FLUOKSETYNA [Concomitant]

REACTIONS (4)
  - Hepatitis C [Unknown]
  - Drug ineffective [Unknown]
  - Cerebral toxoplasmosis [Unknown]
  - Pathogen resistance [Unknown]

NARRATIVE: CASE EVENT DATE: 202002
